FAERS Safety Report 9181947 (Version 2)
Quarter: 2013Q2

REPORT INFORMATION
  Report Type: Spontaneous
  Country: US (occurrence: US)
  Receive Date: 20120531
  Receipt Date: 20130426
  Transmission Date: 20140414
  Serious: Yes (Other)
  Sender: FDA-Public Use
  Company Number: US201201006888

PATIENT
  Age: 53 Year
  Sex: Male

DRUGS (1)
  1. BYETTA PEN DISPOSABLE [Suspect]
     Dates: start: 20080815, end: 20080904

REACTIONS (4)
  - Pancreatitis [Unknown]
  - Renal failure [Unknown]
  - Hiatus hernia [Unknown]
  - Gastritis [Unknown]
